FAERS Safety Report 5228023-3 (Version None)
Quarter: 2007Q1

REPORT INFORMATION
  Report Type: 
  Country: None (occurrence: None)
  Receive Date: 20061205
  Receipt Date: 20061013
  Transmission Date: 20070707
  Serious: Yes (Other)
  Sender: FDA-Public Use
  Company Number: PHEH2006US10327

PATIENT
  Age: 82 Year
  Sex: Female

DRUGS (4)
  1. EXJADE [Suspect]
     Indication: IRON OVERLOAD
     Dosage: SEE IMAGE
     Route: 048
     Dates: start: 20060627, end: 20060811
  2. SYNTHROID [Concomitant]
  3. LOPRESSOR [Concomitant]
  4. LEXAPRO [Concomitant]

REACTIONS (3)
  - ALANINE AMINOTRANSFERASE INCREASED [None]
  - ASPARTATE AMINOTRANSFERASE INCREASED [None]
  - HEPATIC ENZYME INCREASED [None]
